FAERS Safety Report 13675877 (Version 1)
Quarter: 2017Q2

REPORT INFORMATION
  Report Type: Spontaneous
  Country: US (occurrence: US)
  Receive Date: 20170620
  Receipt Date: 20170620
  Transmission Date: 20170830
  Serious: Yes (Hospitalization)
  Sender: FDA-Public Use
  Company Number: None

PATIENT
  Age: 59 Year
  Sex: Male

DRUGS (1)
  1. PEGLOTICASE [Suspect]
     Active Substance: PEGLOTICASE
     Indication: GOUT
     Dates: start: 20170615, end: 20170615

REACTIONS (2)
  - Methaemoglobinaemia [None]
  - Haemolytic anaemia [None]

NARRATIVE: CASE EVENT DATE: 20170616
